FAERS Safety Report 8806944 (Version 2)
Quarter: 2014Q3

REPORT INFORMATION
  Report Type: Report from Study
  Country: US (occurrence: US)
  Receive Date: 20120925
  Receipt Date: 20140812
  Transmission Date: 20150326
  Serious: Yes (Death)
  Sender: FDA-Public Use
  Company Number: US-ROCHE-1104107

PATIENT
  Sex: Male

DRUGS (6)
  1. AVASTIN [Suspect]
     Active Substance: BEVACIZUMAB
     Indication: COLORECTAL CANCER
  2. LEUCOVORIN [Concomitant]
     Active Substance: LEUCOVORIN
  3. OXALIPLATIN. [Concomitant]
     Active Substance: OXALIPLATIN
  4. AVASTIN [Suspect]
     Active Substance: BEVACIZUMAB
     Indication: COLON CANCER
  5. 5-FU [Concomitant]
     Active Substance: FLUOROURACIL
  6. AVASTIN [Suspect]
     Active Substance: BEVACIZUMAB
     Indication: METASTASES TO LIVER
     Route: 065

REACTIONS (1)
  - Hepatic cancer [Fatal]
